FAERS Safety Report 25619266 (Version 1)
Quarter: 2025Q3

REPORT INFORMATION
  Report Type: Spontaneous
  Country: US (occurrence: US)
  Receive Date: 20250729
  Receipt Date: 20250729
  Transmission Date: 20251021
  Serious: Yes (Hospitalization)
  Sender: MYLAN
  Company Number: US-MYLANLABS-2025M1062238

PATIENT
  Age: 49 Year
  Sex: Female

DRUGS (8)
  1. PREDNISONE [Suspect]
     Active Substance: PREDNISONE
     Indication: Primary ciliary dyskinesia
  2. PREDNISONE [Suspect]
     Active Substance: PREDNISONE
     Route: 065
  3. PREDNISONE [Suspect]
     Active Substance: PREDNISONE
     Route: 065
  4. PREDNISONE [Suspect]
     Active Substance: PREDNISONE
  5. CEFDINIR [Concomitant]
     Active Substance: CEFDINIR
     Indication: Antibiotic prophylaxis
  6. CEFDINIR [Concomitant]
     Active Substance: CEFDINIR
     Route: 065
  7. CEFDINIR [Concomitant]
     Active Substance: CEFDINIR
     Route: 065
  8. CEFDINIR [Concomitant]
     Active Substance: CEFDINIR

REACTIONS (1)
  - Drug ineffective [Unknown]
